FAERS Safety Report 4531666-3 (Version None)
Quarter: 2004Q4

REPORT INFORMATION
  Report Type: 
  Country: None (occurrence: None)
  Receive Date: 20041216
  Receipt Date: 20041202
  Transmission Date: 20050328
  Serious: Yes (Hospitalization, Other)
  Sender: FDA-Public Use
  Company Number: 2004102757

PATIENT
  Age: 74 Year
  Sex: Male
  Weight: 91.6266 kg

DRUGS (2)
  1. CELEBREX [Suspect]
     Indication: EXOSTOSIS
     Dosage: 200 MG (200 MG, PRN), ORAL
     Route: 048
     Dates: end: 20041202
  2. GLUCOSAMINE (GLUCOSAMINE) [Concomitant]

REACTIONS (8)
  - APPENDICECTOMY [None]
  - ARTHRALGIA [None]
  - BACK PAIN [None]
  - CEREBROVASCULAR ACCIDENT [None]
  - DIABETES MELLITUS [None]
  - DRUG EFFECT DECREASED [None]
  - ROTATOR CUFF SYNDROME [None]
  - TRIPLE VESSEL BYPASS GRAFT [None]
